FAERS Safety Report 8108204-1 (Version None)
Quarter: 2012Q1

REPORT INFORMATION
  Report Type: 
  Country: None (occurrence: None)
  Receive Date: 20120202
  Receipt Date: 20120125
  Transmission Date: 20120608
  Serious: Yes (Hospitalization, Other)
  Sender: FDA-Public Use
  Company Number: US-ABBOTT-12P-163-0897630-00

PATIENT
  Sex: Female

DRUGS (4)
  1. HUMIRA [Suspect]
     Indication: RHEUMATOID ARTHRITIS
     Dates: start: 20030101
  2. HORMONE REPLACEMENT [Concomitant]
     Indication: HORMONE REPLACEMENT THERAPY
  3. AMITRIPTYLINE HCL [Concomitant]
     Indication: SLEEP DISORDER THERAPY
  4. MORPHINE [Suspect]
     Indication: VOMITING
     Dates: start: 20030101, end: 20030101

REACTIONS (7)
  - H1N1 INFLUENZA [None]
  - VOMITING [None]
  - COUGH [None]
  - PROCEDURAL PAIN [None]
  - URINARY RETENTION POSTOPERATIVE [None]
  - RHEUMATOID ARTHRITIS [None]
  - WHEEZING [None]
